FAERS Safety Report 23302842 (Version 1)
Quarter: 2023Q4

REPORT INFORMATION
  Report Type: Spontaneous
  Country: CH (occurrence: CH)
  Receive Date: 20231215
  Receipt Date: 20231215
  Transmission Date: 20240109
  Serious: Yes (Disabling, Congenital Anomaly)
  Sender: FDA-Public Use
  Company Number: CH-AMGEN-CHESP2023217399

PATIENT
  Sex: Female
  Weight: 2.88 kg

DRUGS (1)
  1. ADALIMUMAB [Suspect]
     Active Substance: ADALIMUMAB\ISOPROPYL ALCOHOL
     Indication: Exposure during pregnancy
     Dosage: UNK
     Route: 064

REACTIONS (8)
  - Multiple congenital abnormalities [Not Recovered/Not Resolved]
  - Anorectal malformation [Not Recovered/Not Resolved]
  - Dysplasia [Not Recovered/Not Resolved]
  - Talipes [Not Recovered/Not Resolved]
  - Naevus flammeus [Not Recovered/Not Resolved]
  - Caudal regression syndrome [Not Recovered/Not Resolved]
  - Asplenia [Not Recovered/Not Resolved]
  - Foetal exposure during pregnancy [Unknown]
